FAERS Safety Report 9254108 (Version 1)
Quarter: 2013Q1

REPORT INFORMATION
  Report Type: Spontaneous
  Country: US (occurrence: None)
  Receive Date: 20121211
  Receipt Date: 20121211
  Transmission Date: 20140127
  Serious: Yes (Other)
  Sender: FDA-Public Use
  Company Number: 1202USA01226

PATIENT
  Age: 69 Year
  Sex: Male

DRUGS (1)
  1. ISENTRESS [Suspect]
     Indication: HIV INFECTION
     Dosage: 2 UNK, QD, ORAL
     Route: 048
     Dates: start: 201112, end: 20120118

REACTIONS (4)
  - Rash [None]
  - Chest pain [None]
  - Pain in extremity [None]
  - Adverse event [None]
